FAERS Safety Report 6475869-X (Version None)
Quarter: 2009Q4

REPORT INFORMATION
  Report Type: 
  Country: None (occurrence: None)
  Receive Date: 20091204
  Receipt Date: 20091124
  Transmission Date: 20100525
  Serious: Yes (Hospitalization, Other)
  Sender: FDA-Public Use
  Company Number: GB-PFIZER INC-2009304449

PATIENT
  Age: 71 Year
  Sex: Female

DRUGS (12)
  1. METFORMIN HCL [Suspect]
     Indication: TYPE 2 DIABETES MELLITUS
     Dosage: 1 G, 2X/DAY
     Route: 048
  2. METFORMIN HCL [Suspect]
     Indication: DIABETES MELLITUS
  3. DOXAZOSIN MESILATE [Suspect]
     Dosage: UNK
     Route: 065
  4. GLICLAZIDE [Suspect]
     Indication: TYPE 2 DIABETES MELLITUS
     Dosage: 60 MG, 2X/DAY
     Route: 048
  5. GLICLAZIDE [Suspect]
     Indication: DIABETES MELLITUS
  6. ATENOLOL [Suspect]
     Route: 048
  7. ACETYLSALICYLIC ACID [Suspect]
     Dosage: UNK
     Route: 065
  8. BENDROFLUMETHIAZIDE [Suspect]
     Dosage: UNK
     Route: 065
  9. PERINDOPRIL [Suspect]
     Dosage: UNK
     Route: 048
  10. ALLOPURINOL [Suspect]
     Indication: GOUT
     Dosage: UNK
     Route: 048
  11. CLOPIDOGREL [Suspect]
     Dosage: UNK
     Route: 065
  12. IRBESARTAN [Suspect]
     Dosage: UNK
     Route: 065

REACTIONS (14)
  - ALCOHOL USE [None]
  - BREATH SOUNDS ABNORMAL [None]
  - CHEST X-RAY ABNORMAL [None]
  - COMA [None]
  - DRUG INTERACTION [None]
  - FALL [None]
  - HYPOGLYCAEMIA [None]
  - HYPOTENSION [None]
  - HYPOTHERMIA [None]
  - LACTIC ACIDOSIS [None]
  - NEUTROPHIL COUNT INCREASED [None]
  - RENAL CYST [None]
  - RENAL FAILURE ACUTE [None]
  - WHITE BLOOD CELL COUNT INCREASED [None]
